FAERS Safety Report 9093092 (Version 2)
Quarter: 2013Q1

REPORT INFORMATION
  Report Type: Spontaneous
  Country: US (occurrence: US)
  Receive Date: 20130218
  Receipt Date: 20130319
  Transmission Date: 20140127
  Serious: Yes (Death, Hospitalization)
  Sender: FDA-Public Use
  Company Number: US-BAXTER-2013BAX005644

PATIENT
  Age: 70 None
  Sex: Female

DRUGS (1)
  1. DIANEAL LOW CALCIUM (ULTRABAG) [Suspect]
     Indication: PERITONEAL DIALYSIS
     Route: 033
     Dates: end: 20130301

REACTIONS (4)
  - Cardiac failure congestive [Fatal]
  - Arterial occlusive disease [Recovering/Resolving]
  - Aortic valve calcification [Not Recovered/Not Resolved]
  - Mitral valve calcification [Not Recovered/Not Resolved]
